FAERS Safety Report 4760178-7 (Version None)
Quarter: 2005Q3

REPORT INFORMATION
  Report Type: 
  Country: None (occurrence: None)
  Receive Date: 20050831
  Receipt Date: 20050831
  Transmission Date: 20060218
  Serious: Yes (Other)
  Sender: FDA-Public Use
  Company Number: None

PATIENT
  Age: 58 Year
  Sex: Female
  Weight: 54.4316 kg

DRUGS (3)
  1. TEQUIN [Suspect]
     Indication: URINARY TRACT INFECTION
     Dosage: 400 MG ONCE DAILY
     Dates: start: 20050331, end: 20050402
  2. LEVOXYL [Concomitant]
  3. INSULIN LISPRO [Concomitant]
     Indication: CYSTITIS

REACTIONS (6)
  - DIZZINESS [None]
  - MOTION SICKNESS [None]
  - MYOCARDIAL INFARCTION [None]
  - NAUSEA [None]
  - PAIN [None]
  - PALPITATIONS [None]
